FAERS Safety Report 21917230 (Version 12)
Quarter: 2025Q4

REPORT INFORMATION
  Report Type: Spontaneous
  Country: CA (occurrence: CA)
  Receive Date: 20230126
  Receipt Date: 20251231
  Transmission Date: 20260118
  Serious: Yes (Other)
  Sender: JOHNSON AND JOHNSON
  Company Number: CA-JNJFOC-20230135535

PATIENT
  Age: 41 Year
  Sex: Female

DRUGS (465)
  1. TOPAMAX [Suspect]
     Active Substance: TOPIRAMATE
     Indication: Migraine
     Route: 048
  2. TOPAMAX [Suspect]
     Active Substance: TOPIRAMATE
     Route: 048
  3. ACETAMINOPHEN [Suspect]
     Active Substance: ACETAMINOPHEN
     Indication: Product used for unknown indication
  4. ACETAMINOPHEN [Suspect]
     Active Substance: ACETAMINOPHEN
  5. AMOXICILLIN TRIHYDRATE [Suspect]
     Active Substance: AMOXICILLIN
     Indication: Product used for unknown indication
  6. AMOXICILLIN TRIHYDRATE [Suspect]
     Active Substance: AMOXICILLIN
  7. AMOXICILLIN TRIHYDRATE [Suspect]
     Active Substance: AMOXICILLIN
  8. AMOXICILLIN TRIHYDRATE [Suspect]
     Active Substance: AMOXICILLIN
  9. AMOXICILLIN TRIHYDRATE [Suspect]
     Active Substance: AMOXICILLIN
  10. AMOXICILLIN TRIHYDRATE [Suspect]
     Active Substance: AMOXICILLIN
  11. TRAMADOL HYDROCHLORIDE [Suspect]
     Active Substance: TRAMADOL HYDROCHLORIDE
     Indication: Product used for unknown indication
  12. TRAMADOL HYDROCHLORIDE [Suspect]
     Active Substance: TRAMADOL HYDROCHLORIDE
  13. BOTULINUM TOXIN TYPE A [Suspect]
     Active Substance: BOTULINUM TOXIN TYPE A
     Indication: Product used for unknown indication
  14. BOTULINUM TOXIN TYPE A [Suspect]
     Active Substance: BOTULINUM TOXIN TYPE A
  15. BOTULINUM TOXIN TYPE A [Suspect]
     Active Substance: BOTULINUM TOXIN TYPE A
     Dosage: POWDER FOR SOLUTION
  16. BOTULINUM TOXIN TYPE A [Suspect]
     Active Substance: BOTULINUM TOXIN TYPE A
     Dosage: POWDER FOR SOLUTION
  17. BOTULINUM TOXIN TYPE A [Suspect]
     Active Substance: BOTULINUM TOXIN TYPE A
     Dosage: POWDER FOR SOLUTION
  18. BOTULINUM TOXIN TYPE A [Suspect]
     Active Substance: BOTULINUM TOXIN TYPE A
     Dosage: POWDER FOR SOLUTION
  19. BOTULINUM TOXIN TYPE A [Suspect]
     Active Substance: BOTULINUM TOXIN TYPE A
     Dosage: POWDER FOR SOLUTION
  20. BOTULINUM TOXIN TYPE A [Suspect]
     Active Substance: BOTULINUM TOXIN TYPE A
     Dosage: POWDER FOR SOLUTION
  21. BOTULINUM TOXIN TYPE A [Suspect]
     Active Substance: BOTULINUM TOXIN TYPE A
  22. BOTULINUM TOXIN TYPE A [Suspect]
     Active Substance: BOTULINUM TOXIN TYPE A
  23. BOTULINUM TOXIN TYPE A [Suspect]
     Active Substance: BOTULINUM TOXIN TYPE A
     Dosage: POWDER FOR SOLUTION
  24. BOTULINUM TOXIN TYPE A [Suspect]
     Active Substance: BOTULINUM TOXIN TYPE A
     Dosage: POWDER FOR SOLUTION
  25. BOTULINUM TOXIN TYPE A [Suspect]
     Active Substance: BOTULINUM TOXIN TYPE A
     Dosage: POWDER FOR SOLUTION
  26. BOTULINUM TOXIN TYPE A [Suspect]
     Active Substance: BOTULINUM TOXIN TYPE A
     Dosage: POWDER FOR SOLUTION
  27. BOTULINUM TOXIN TYPE A [Suspect]
     Active Substance: BOTULINUM TOXIN TYPE A
     Dosage: POWDER FOR SOLUTION
  28. BOTULINUM TOXIN TYPE A [Suspect]
     Active Substance: BOTULINUM TOXIN TYPE A
     Dosage: POWDER FOR SOLUTION
  29. CIPROFLOXACIN HYDROCHLORIDE [Suspect]
     Active Substance: CIPROFLOXACIN HYDROCHLORIDE
     Indication: Migraine
  30. CIPROFLOXACIN HYDROCHLORIDE [Suspect]
     Active Substance: CIPROFLOXACIN HYDROCHLORIDE
     Indication: Product used for unknown indication
  31. CIPROFLOXACIN HYDROCHLORIDE [Suspect]
     Active Substance: CIPROFLOXACIN HYDROCHLORIDE
  32. CIPROFLOXACIN HYDROCHLORIDE [Suspect]
     Active Substance: CIPROFLOXACIN HYDROCHLORIDE
  33. CIPROFLOXACIN HYDROCHLORIDE [Suspect]
     Active Substance: CIPROFLOXACIN HYDROCHLORIDE
  34. CIPROFLOXACIN HYDROCHLORIDE [Suspect]
     Active Substance: CIPROFLOXACIN HYDROCHLORIDE
  35. CIPROFLOXACIN HYDROCHLORIDE [Suspect]
     Active Substance: CIPROFLOXACIN HYDROCHLORIDE
  36. CIPROFLOXACIN HYDROCHLORIDE [Suspect]
     Active Substance: CIPROFLOXACIN HYDROCHLORIDE
  37. CLARITHROMYCIN [Suspect]
     Active Substance: CLARITHROMYCIN
     Indication: Product used for unknown indication
  38. CLARITHROMYCIN [Suspect]
     Active Substance: CLARITHROMYCIN
  39. CLARITHROMYCIN [Suspect]
     Active Substance: CLARITHROMYCIN
  40. CLARITHROMYCIN [Suspect]
     Active Substance: CLARITHROMYCIN
  41. CLARITHROMYCIN [Suspect]
     Active Substance: CLARITHROMYCIN
  42. CLARITHROMYCIN [Suspect]
     Active Substance: CLARITHROMYCIN
  43. CODEINE [Suspect]
     Active Substance: CODEINE
     Indication: Migraine
  44. CODEINE [Suspect]
     Active Substance: CODEINE
  45. CODEINE [Suspect]
     Active Substance: CODEINE
  46. CODEINE [Suspect]
     Active Substance: CODEINE
  47. DEXAMETHASONE [Suspect]
     Active Substance: DEXAMETHASONE
     Indication: Migraine
  48. DEXAMETHASONE [Suspect]
     Active Substance: DEXAMETHASONE
  49. DEXAMETHASONE [Suspect]
     Active Substance: DEXAMETHASONE
  50. DEXAMETHASONE [Suspect]
     Active Substance: DEXAMETHASONE
  51. DEXAMETHASONE [Suspect]
     Active Substance: DEXAMETHASONE
  52. DEXAMETHASONE [Suspect]
     Active Substance: DEXAMETHASONE
  53. ESCITALOPRAM OXALATE [Suspect]
     Active Substance: ESCITALOPRAM OXALATE
     Indication: Migraine
     Route: 048
  54. ESCITALOPRAM OXALATE [Suspect]
     Active Substance: ESCITALOPRAM OXALATE
     Route: 048
  55. ESCITALOPRAM OXALATE [Suspect]
     Active Substance: ESCITALOPRAM OXALATE
     Route: 048
  56. ESCITALOPRAM OXALATE [Suspect]
     Active Substance: ESCITALOPRAM OXALATE
     Route: 048
  57. ESOMEPRAZOLE MAGNESIUM [Suspect]
     Active Substance: ESOMEPRAZOLE MAGNESIUM
     Indication: Migraine
     Route: 048
  58. ESOMEPRAZOLE MAGNESIUM [Suspect]
     Active Substance: ESOMEPRAZOLE MAGNESIUM
     Route: 048
  59. FLUCONAZOLE [Suspect]
     Active Substance: FLUCONAZOLE
     Indication: Migraine
  60. FLUCONAZOLE [Suspect]
     Active Substance: FLUCONAZOLE
  61. FLUCONAZOLE [Suspect]
     Active Substance: FLUCONAZOLE
  62. FLUCONAZOLE [Suspect]
     Active Substance: FLUCONAZOLE
  63. HYDROMORPHONE HYDROCHLORIDE [Suspect]
     Active Substance: HYDROMORPHONE HYDROCHLORIDE
     Indication: Product used for unknown indication
  64. HYDROMORPHONE HYDROCHLORIDE [Suspect]
     Active Substance: HYDROMORPHONE HYDROCHLORIDE
  65. HYDROMORPHONE HYDROCHLORIDE [Suspect]
     Active Substance: HYDROMORPHONE HYDROCHLORIDE
  66. HYDROMORPHONE HYDROCHLORIDE [Suspect]
     Active Substance: HYDROMORPHONE HYDROCHLORIDE
  67. BUTYLSCOPOLAMINE BROMIDE [Suspect]
     Active Substance: BUTYLSCOPOLAMINE BROMIDE
     Indication: Migraine
  68. BUTYLSCOPOLAMINE BROMIDE [Suspect]
     Active Substance: BUTYLSCOPOLAMINE BROMIDE
     Indication: Product used for unknown indication
  69. BUTYLSCOPOLAMINE BROMIDE [Suspect]
     Active Substance: BUTYLSCOPOLAMINE BROMIDE
  70. BUTYLSCOPOLAMINE BROMIDE [Suspect]
     Active Substance: BUTYLSCOPOLAMINE BROMIDE
  71. BUTYLSCOPOLAMINE BROMIDE [Suspect]
     Active Substance: BUTYLSCOPOLAMINE BROMIDE
  72. BUTYLSCOPOLAMINE BROMIDE [Suspect]
     Active Substance: BUTYLSCOPOLAMINE BROMIDE
  73. BUTYLSCOPOLAMINE BROMIDE [Suspect]
     Active Substance: BUTYLSCOPOLAMINE BROMIDE
  74. BUTYLSCOPOLAMINE BROMIDE [Suspect]
     Active Substance: BUTYLSCOPOLAMINE BROMIDE
  75. INDOMETHACIN [Suspect]
     Active Substance: INDOMETHACIN
     Indication: Migraine
     Dosage: DURATION OF DRUG ADMINISTRATION 3.972 YEAR
     Route: 054
  76. INDOMETHACIN [Suspect]
     Active Substance: INDOMETHACIN
     Dosage: DURATION OF DRUG ADMINISTRATION 3.972 YEAR
     Route: 054
  77. INDOMETHACIN [Suspect]
     Active Substance: INDOMETHACIN
     Route: 054
  78. INDOMETHACIN [Suspect]
     Active Substance: INDOMETHACIN
     Route: 054
  79. INDOMETHACIN [Suspect]
     Active Substance: INDOMETHACIN
     Route: 054
  80. INDOMETHACIN [Suspect]
     Active Substance: INDOMETHACIN
     Route: 054
  81. INDOMETHACIN [Suspect]
     Active Substance: INDOMETHACIN
  82. INDOMETHACIN [Suspect]
     Active Substance: INDOMETHACIN
     Route: 054
  83. INDOMETHACIN [Suspect]
     Active Substance: INDOMETHACIN
     Route: 054
  84. INDOMETHACIN [Suspect]
     Active Substance: INDOMETHACIN
     Route: 054
  85. INDOMETHACIN [Suspect]
     Active Substance: INDOMETHACIN
     Route: 054
  86. INDOMETHACIN [Suspect]
     Active Substance: INDOMETHACIN
     Route: 054
  87. INDOMETHACIN [Suspect]
     Active Substance: INDOMETHACIN
     Route: 054
  88. INDOMETHACIN [Suspect]
     Active Substance: INDOMETHACIN
     Route: 054
  89. INDOMETHACIN [Suspect]
     Active Substance: INDOMETHACIN
     Route: 054
  90. INDOMETHACIN [Suspect]
     Active Substance: INDOMETHACIN
     Route: 054
  91. INDOMETHACIN [Suspect]
     Active Substance: INDOMETHACIN
     Route: 054
  92. INDOMETHACIN [Suspect]
     Active Substance: INDOMETHACIN
     Dosage: DURATION OF DRUG ADMINISTRATION 3.972 YEAR
     Route: 054
  93. INDOMETHACIN [Suspect]
     Active Substance: INDOMETHACIN
     Dosage: DURATION OF DRUG ADMINISTRATION 3.972 YEAR
     Route: 054
  94. INDOMETHACIN [Suspect]
     Active Substance: INDOMETHACIN
     Route: 054
  95. INDOMETHACIN [Suspect]
     Active Substance: INDOMETHACIN
     Route: 054
  96. INDOMETHACIN [Suspect]
     Active Substance: INDOMETHACIN
     Route: 054
  97. INDOMETHACIN [Suspect]
     Active Substance: INDOMETHACIN
     Route: 054
  98. INDOMETHACIN [Suspect]
     Active Substance: INDOMETHACIN
  99. INDOMETHACIN [Suspect]
     Active Substance: INDOMETHACIN
     Route: 054
  100. INDOMETHACIN [Suspect]
     Active Substance: INDOMETHACIN
     Route: 054
  101. INDOMETHACIN [Suspect]
     Active Substance: INDOMETHACIN
     Route: 054
  102. INDOMETHACIN [Suspect]
     Active Substance: INDOMETHACIN
     Route: 054
  103. INDOMETHACIN [Suspect]
     Active Substance: INDOMETHACIN
     Route: 054
  104. INDOMETHACIN [Suspect]
     Active Substance: INDOMETHACIN
     Route: 054
  105. INDOMETHACIN [Suspect]
     Active Substance: INDOMETHACIN
     Route: 054
  106. INDOMETHACIN [Suspect]
     Active Substance: INDOMETHACIN
     Route: 054
  107. INDOMETHACIN [Suspect]
     Active Substance: INDOMETHACIN
     Route: 054
  108. INDOMETHACIN [Suspect]
     Active Substance: INDOMETHACIN
     Route: 054
  109. LANSOPRAZOLE [Suspect]
     Active Substance: LANSOPRAZOLE
     Indication: Migraine
     Route: 048
  110. LANSOPRAZOLE [Suspect]
     Active Substance: LANSOPRAZOLE
     Route: 048
  111. LANSOPRAZOLE [Suspect]
     Active Substance: LANSOPRAZOLE
     Route: 048
  112. LANSOPRAZOLE [Suspect]
     Active Substance: LANSOPRAZOLE
     Route: 048
  113. LISINOPRIL [Suspect]
     Active Substance: LISINOPRIL
     Indication: Migraine
     Route: 048
  114. LISINOPRIL [Suspect]
     Active Substance: LISINOPRIL
     Route: 048
  115. LISINOPRIL [Suspect]
     Active Substance: LISINOPRIL
     Route: 048
  116. LISINOPRIL [Suspect]
     Active Substance: LISINOPRIL
     Route: 048
  117. LISINOPRIL [Suspect]
     Active Substance: LISINOPRIL
     Route: 048
  118. LISINOPRIL [Suspect]
     Active Substance: LISINOPRIL
     Route: 048
  119. LISINOPRIL [Suspect]
     Active Substance: LISINOPRIL
     Route: 048
  120. LISINOPRIL [Suspect]
     Active Substance: LISINOPRIL
     Route: 048
  121. LISINOPRIL [Suspect]
     Active Substance: LISINOPRIL
     Route: 048
  122. LISINOPRIL [Suspect]
     Active Substance: LISINOPRIL
     Route: 048
  123. LISINOPRIL [Suspect]
     Active Substance: LISINOPRIL
     Route: 048
  124. LISINOPRIL [Suspect]
     Active Substance: LISINOPRIL
     Route: 048
  125. METOCLOPRAMIDE [Suspect]
     Active Substance: METOCLOPRAMIDE
     Indication: Migraine
  126. METOCLOPRAMIDE [Suspect]
     Active Substance: METOCLOPRAMIDE
  127. METOCLOPRAMIDE [Suspect]
     Active Substance: METOCLOPRAMIDE
  128. METOCLOPRAMIDE [Suspect]
     Active Substance: METOCLOPRAMIDE
  129. METOCLOPRAMIDE [Suspect]
     Active Substance: METOCLOPRAMIDE
  130. METOCLOPRAMIDE [Suspect]
     Active Substance: METOCLOPRAMIDE
  131. METOCLOPRAMIDE [Suspect]
     Active Substance: METOCLOPRAMIDE
  132. METOCLOPRAMIDE [Suspect]
     Active Substance: METOCLOPRAMIDE
  133. METOCLOPRAMIDE HYDROCHLORIDE [Suspect]
     Active Substance: METOCLOPRAMIDE HYDROCHLORIDE
     Indication: Migraine
  134. METOCLOPRAMIDE HYDROCHLORIDE [Suspect]
     Active Substance: METOCLOPRAMIDE HYDROCHLORIDE
     Indication: Product used for unknown indication
  135. METOCLOPRAMIDE HYDROCHLORIDE [Suspect]
     Active Substance: METOCLOPRAMIDE HYDROCHLORIDE
  136. METOCLOPRAMIDE HYDROCHLORIDE [Suspect]
     Active Substance: METOCLOPRAMIDE HYDROCHLORIDE
  137. MOMETASONE FUROATE [Suspect]
     Active Substance: MOMETASONE FUROATE
     Indication: Product used for unknown indication
     Dosage: METERED?DOSE
  138. MOMETASONE FUROATE [Suspect]
     Active Substance: MOMETASONE FUROATE
     Indication: Migraine
  139. MOMETASONE FUROATE [Suspect]
     Active Substance: MOMETASONE FUROATE
  140. MOMETASONE FUROATE [Suspect]
     Active Substance: MOMETASONE FUROATE
  141. MOMETASONE FUROATE [Suspect]
     Active Substance: MOMETASONE FUROATE
  142. MOMETASONE FUROATE [Suspect]
     Active Substance: MOMETASONE FUROATE
  143. MOMETASONE FUROATE [Suspect]
     Active Substance: MOMETASONE FUROATE
     Dosage: METERED?DOSE
  144. MOMETASONE FUROATE [Suspect]
     Active Substance: MOMETASONE FUROATE
  145. MOMETASONE FUROATE [Suspect]
     Active Substance: MOMETASONE FUROATE
  146. MOMETASONE FUROATE [Suspect]
     Active Substance: MOMETASONE FUROATE
  147. MOMETASONE FUROATE [Suspect]
     Active Substance: MOMETASONE FUROATE
  148. MOMETASONE FUROATE [Suspect]
     Active Substance: MOMETASONE FUROATE
  149. PROPRANOLOL [Suspect]
     Active Substance: PROPRANOLOL HYDROCHLORIDE
     Indication: Migraine
     Route: 048
  150. PROPRANOLOL [Suspect]
     Active Substance: PROPRANOLOL HYDROCHLORIDE
     Indication: Product used for unknown indication
     Route: 048
  151. PROPRANOLOL [Suspect]
     Active Substance: PROPRANOLOL HYDROCHLORIDE
  152. PROPRANOLOL [Suspect]
     Active Substance: PROPRANOLOL HYDROCHLORIDE
     Route: 048
  153. PROPRANOLOL [Suspect]
     Active Substance: PROPRANOLOL HYDROCHLORIDE
     Route: 048
  154. PROPRANOLOL [Suspect]
     Active Substance: PROPRANOLOL HYDROCHLORIDE
  155. RABEPRAZOLE SODIUM [Suspect]
     Active Substance: RABEPRAZOLE SODIUM
     Indication: Product used for unknown indication
  156. RABEPRAZOLE SODIUM [Suspect]
     Active Substance: RABEPRAZOLE SODIUM
     Indication: Migraine
  157. RABEPRAZOLE SODIUM [Suspect]
     Active Substance: RABEPRAZOLE SODIUM
  158. RABEPRAZOLE SODIUM [Suspect]
     Active Substance: RABEPRAZOLE SODIUM
  159. RABEPRAZOLE SODIUM [Suspect]
     Active Substance: RABEPRAZOLE SODIUM
  160. RABEPRAZOLE SODIUM [Suspect]
     Active Substance: RABEPRAZOLE SODIUM
  161. RIZATRIPTAN BENZOATE [Suspect]
     Active Substance: RIZATRIPTAN BENZOATE
     Indication: Migraine
  162. RIZATRIPTAN BENZOATE [Suspect]
     Active Substance: RIZATRIPTAN BENZOATE
     Indication: Product used for unknown indication
  163. RIZATRIPTAN BENZOATE [Suspect]
     Active Substance: RIZATRIPTAN BENZOATE
  164. RIZATRIPTAN BENZOATE [Suspect]
     Active Substance: RIZATRIPTAN BENZOATE
  165. ALBUTEROL [Suspect]
     Active Substance: ALBUTEROL
     Indication: Product used for unknown indication
  166. ALBUTEROL [Suspect]
     Active Substance: ALBUTEROL
     Dosage: METERED-DOSE (AEROSOL)
  167. ALBUTEROL [Suspect]
     Active Substance: ALBUTEROL
  168. ALBUTEROL [Suspect]
     Active Substance: ALBUTEROL
  169. ALBUTEROL [Suspect]
     Active Substance: ALBUTEROL
  170. ALBUTEROL [Suspect]
     Active Substance: ALBUTEROL
  171. ALBUTEROL [Suspect]
     Active Substance: ALBUTEROL
     Dosage: METERED-DOSE (AEROSOL)
  172. ALBUTEROL [Suspect]
     Active Substance: ALBUTEROL
  173. ALBUTEROL [Suspect]
     Active Substance: ALBUTEROL
  174. ALBUTEROL [Suspect]
     Active Substance: ALBUTEROL
  175. SERTRALINE HYDROCHLORIDE [Suspect]
     Active Substance: SERTRALINE HYDROCHLORIDE
     Indication: Migraine
  176. SERTRALINE HYDROCHLORIDE [Suspect]
     Active Substance: SERTRALINE HYDROCHLORIDE
  177. SERTRALINE HYDROCHLORIDE [Suspect]
     Active Substance: SERTRALINE HYDROCHLORIDE
  178. SERTRALINE HYDROCHLORIDE [Suspect]
     Active Substance: SERTRALINE HYDROCHLORIDE
  179. SUMATRIPTAN SUCCINATE [Suspect]
     Active Substance: SUMATRIPTAN SUCCINATE
     Indication: Product used for unknown indication
  180. SUMATRIPTAN SUCCINATE [Suspect]
     Active Substance: SUMATRIPTAN SUCCINATE
     Indication: Migraine
  181. SUMATRIPTAN SUCCINATE [Suspect]
     Active Substance: SUMATRIPTAN SUCCINATE
  182. SUMATRIPTAN SUCCINATE [Suspect]
     Active Substance: SUMATRIPTAN SUCCINATE
  183. SUMATRIPTAN SUCCINATE [Suspect]
     Active Substance: SUMATRIPTAN SUCCINATE
  184. SUMATRIPTAN SUCCINATE [Suspect]
     Active Substance: SUMATRIPTAN SUCCINATE
  185. DULOXETINE [Suspect]
     Active Substance: DULOXETINE
     Indication: Migraine
     Route: 048
  186. DULOXETINE [Suspect]
     Active Substance: DULOXETINE
     Route: 048
  187. TRIMETHOPRIM [Suspect]
     Active Substance: TRIMETHOPRIM
     Indication: Product used for unknown indication
  188. TRIMETHOPRIM [Suspect]
     Active Substance: TRIMETHOPRIM
  189. TRIMETHOPRIM [Suspect]
     Active Substance: TRIMETHOPRIM
  190. TRIMETHOPRIM [Suspect]
     Active Substance: TRIMETHOPRIM
  191. VENLAFAXINE HYDROCHLORIDE [Suspect]
     Active Substance: VENLAFAXINE HYDROCHLORIDE
     Indication: Migraine
  192. VENLAFAXINE HYDROCHLORIDE [Suspect]
     Active Substance: VENLAFAXINE HYDROCHLORIDE
     Indication: Migraine
  193. VENLAFAXINE HYDROCHLORIDE [Suspect]
     Active Substance: VENLAFAXINE HYDROCHLORIDE
  194. VENLAFAXINE HYDROCHLORIDE [Suspect]
     Active Substance: VENLAFAXINE HYDROCHLORIDE
  195. VENLAFAXINE HYDROCHLORIDE [Suspect]
     Active Substance: VENLAFAXINE HYDROCHLORIDE
  196. VENLAFAXINE HYDROCHLORIDE [Suspect]
     Active Substance: VENLAFAXINE HYDROCHLORIDE
  197. ZOPICLONE [Suspect]
     Active Substance: ZOPICLONE
     Indication: Product used for unknown indication
  198. ZOPICLONE [Suspect]
     Active Substance: ZOPICLONE
     Indication: Migraine
  199. ZOPICLONE [Suspect]
     Active Substance: ZOPICLONE
  200. ZOPICLONE [Suspect]
     Active Substance: ZOPICLONE
  201. ZOPICLONE [Suspect]
     Active Substance: ZOPICLONE
  202. ZOPICLONE [Suspect]
     Active Substance: ZOPICLONE
  203. ZOPICLONE [Suspect]
     Active Substance: ZOPICLONE
  204. ZOPICLONE [Suspect]
     Active Substance: ZOPICLONE
  205. ZOPICLONE [Suspect]
     Active Substance: ZOPICLONE
  206. ZOPICLONE [Suspect]
     Active Substance: ZOPICLONE
  207. ZOPICLONE [Suspect]
     Active Substance: ZOPICLONE
  208. ZOPICLONE [Suspect]
     Active Substance: ZOPICLONE
  209. ZOPICLONE [Suspect]
     Active Substance: ZOPICLONE
  210. ZOPICLONE [Suspect]
     Active Substance: ZOPICLONE
  211. ZOPICLONE [Suspect]
     Active Substance: ZOPICLONE
  212. ZOPICLONE [Suspect]
     Active Substance: ZOPICLONE
  213. ZOPICLONE [Suspect]
     Active Substance: ZOPICLONE
  214. ZOPICLONE [Suspect]
     Active Substance: ZOPICLONE
  215. ZOPICLONE [Suspect]
     Active Substance: ZOPICLONE
  216. ZOPICLONE [Suspect]
     Active Substance: ZOPICLONE
  217. ZOPICLONE [Suspect]
     Active Substance: ZOPICLONE
  218. ZOPICLONE [Suspect]
     Active Substance: ZOPICLONE
  219. ZOPICLONE [Suspect]
     Active Substance: ZOPICLONE
  220. ZOPICLONE [Suspect]
     Active Substance: ZOPICLONE
  221. ZOPICLONE [Suspect]
     Active Substance: ZOPICLONE
  222. ZOPICLONE [Suspect]
     Active Substance: ZOPICLONE
  223. ZOPICLONE [Suspect]
     Active Substance: ZOPICLONE
  224. ZOPICLONE [Suspect]
     Active Substance: ZOPICLONE
  225. ZOPICLONE [Suspect]
     Active Substance: ZOPICLONE
  226. ZOPICLONE [Suspect]
     Active Substance: ZOPICLONE
  227. ZOPICLONE [Suspect]
     Active Substance: ZOPICLONE
  228. ZOPICLONE [Suspect]
     Active Substance: ZOPICLONE
  229. ZOPICLONE [Suspect]
     Active Substance: ZOPICLONE
  230. ZOPICLONE [Suspect]
     Active Substance: ZOPICLONE
  231. ZOPICLONE [Suspect]
     Active Substance: ZOPICLONE
  232. ZOPICLONE [Suspect]
     Active Substance: ZOPICLONE
  233. AMOXICILLIN [Suspect]
     Active Substance: AMOXICILLIN
     Indication: Product used for unknown indication
  234. AMOXICILLIN [Suspect]
     Active Substance: AMOXICILLIN
  235. AMOXICILLIN [Suspect]
     Active Substance: AMOXICILLIN
  236. AMOXICILLIN [Suspect]
     Active Substance: AMOXICILLIN
  237. AMOXICILLIN [Suspect]
     Active Substance: AMOXICILLIN
  238. AMOXICILLIN [Suspect]
     Active Substance: AMOXICILLIN
  239. CYMBALTA [Suspect]
     Active Substance: DULOXETINE HYDROCHLORIDE
     Indication: Product used for unknown indication
  240. CYMBALTA [Suspect]
     Active Substance: DULOXETINE HYDROCHLORIDE
  241. CYMBALTA [Suspect]
     Active Substance: DULOXETINE HYDROCHLORIDE
  242. CYMBALTA [Suspect]
     Active Substance: DULOXETINE HYDROCHLORIDE
  243. DULOXETINE HYDROCHLORIDE [Suspect]
     Active Substance: DULOXETINE HYDROCHLORIDE
     Indication: Migraine
  244. DULOXETINE HYDROCHLORIDE [Suspect]
     Active Substance: DULOXETINE HYDROCHLORIDE
  245. DULOXETINE HYDROCHLORIDE [Suspect]
     Active Substance: DULOXETINE HYDROCHLORIDE
  246. DULOXETINE HYDROCHLORIDE [Suspect]
     Active Substance: DULOXETINE HYDROCHLORIDE
  247. ESCITALOPRAM [Suspect]
     Active Substance: ESCITALOPRAM OXALATE
     Indication: Migraine
  248. ESCITALOPRAM [Suspect]
     Active Substance: ESCITALOPRAM OXALATE
  249. ESOMEPRAZOLE [Suspect]
     Active Substance: ESOMEPRAZOLE
     Indication: Migraine
  250. ESOMEPRAZOLE [Suspect]
     Active Substance: ESOMEPRAZOLE
  251. AZITHROMYCIN [Suspect]
     Active Substance: AZITHROMYCIN
     Indication: Migraine
  252. AZITHROMYCIN [Suspect]
     Active Substance: AZITHROMYCIN
  253. AZITHROMYCIN [Suspect]
     Active Substance: AZITHROMYCIN
  254. AZITHROMYCIN [Suspect]
     Active Substance: AZITHROMYCIN
  255. SUMATRIPTAN [Suspect]
     Active Substance: SUMATRIPTAN
     Indication: Migraine
  256. SUMATRIPTAN [Suspect]
     Active Substance: SUMATRIPTAN
  257. TRAMADOL [Suspect]
     Active Substance: TRAMADOL
     Indication: Product used for unknown indication
  258. TRAMADOL [Suspect]
     Active Substance: TRAMADOL
  259. MAXALT [Suspect]
     Active Substance: RIZATRIPTAN BENZOATE
     Indication: Migraine
  260. MAXALT [Suspect]
     Active Substance: RIZATRIPTAN BENZOATE
  261. MAXALT [Suspect]
     Active Substance: RIZATRIPTAN BENZOATE
  262. MAXALT [Suspect]
     Active Substance: RIZATRIPTAN BENZOATE
  263. MAXALT [Suspect]
     Active Substance: RIZATRIPTAN BENZOATE
  264. MAXALT [Suspect]
     Active Substance: RIZATRIPTAN BENZOATE
  265. ZOLMITRIPTAN [Suspect]
     Active Substance: ZOLMITRIPTAN
     Indication: Product used for unknown indication
  266. ZOLMITRIPTAN [Suspect]
     Active Substance: ZOLMITRIPTAN
  267. PREDNISONE [Suspect]
     Active Substance: PREDNISONE
     Indication: Product used for unknown indication
  268. PREDNISONE [Suspect]
     Active Substance: PREDNISONE
  269. PREDNISONE [Suspect]
     Active Substance: PREDNISONE
  270. PREDNISONE [Suspect]
     Active Substance: PREDNISONE
  271. CLOTRIMAZOLE\FLUCONAZOLE [Suspect]
     Active Substance: CLOTRIMAZOLE\FLUCONAZOLE
     Indication: Product used for unknown indication
  272. CLOTRIMAZOLE\FLUCONAZOLE [Suspect]
     Active Substance: CLOTRIMAZOLE\FLUCONAZOLE
  273. CIPROFLOXACIN LACTATE [Suspect]
     Active Substance: CIPROFLOXACIN LACTATE
     Indication: Migraine
  274. CIPROFLOXACIN LACTATE [Suspect]
     Active Substance: CIPROFLOXACIN LACTATE
  275. CIPROFLOXACIN LACTATE [Suspect]
     Active Substance: CIPROFLOXACIN LACTATE
  276. CIPROFLOXACIN LACTATE [Suspect]
     Active Substance: CIPROFLOXACIN LACTATE
  277. CIPROFLOXACIN LACTATE [Suspect]
     Active Substance: CIPROFLOXACIN LACTATE
  278. CIPROFLOXACIN LACTATE [Suspect]
     Active Substance: CIPROFLOXACIN LACTATE
  279. HYDROMORPHONE [Suspect]
     Active Substance: HYDROMORPHONE
     Indication: Migraine
  280. HYDROMORPHONE [Suspect]
     Active Substance: HYDROMORPHONE
  281. HYDROMORPHONE [Suspect]
     Active Substance: HYDROMORPHONE
  282. HYDROMORPHONE [Suspect]
     Active Substance: HYDROMORPHONE
  283. HYDROMORPHONE [Suspect]
     Active Substance: HYDROMORPHONE
  284. HYDROMORPHONE [Suspect]
     Active Substance: HYDROMORPHONE
  285. HYDROMORPHONE [Suspect]
     Active Substance: HYDROMORPHONE
  286. HYDROMORPHONE [Suspect]
     Active Substance: HYDROMORPHONE
  287. HYDROMORPHONE [Suspect]
     Active Substance: HYDROMORPHONE
  288. HYDROMORPHONE [Suspect]
     Active Substance: HYDROMORPHONE
  289. HYDROMORPHONE [Suspect]
     Active Substance: HYDROMORPHONE
  290. HYDROMORPHONE [Suspect]
     Active Substance: HYDROMORPHONE
  291. HYDROMORPHONE [Suspect]
     Active Substance: HYDROMORPHONE
  292. HYDROMORPHONE [Suspect]
     Active Substance: HYDROMORPHONE
  293. HYDROMORPHONE [Suspect]
     Active Substance: HYDROMORPHONE
  294. HYDROMORPHONE [Suspect]
     Active Substance: HYDROMORPHONE
  295. HYDROMORPHONE [Suspect]
     Active Substance: HYDROMORPHONE
  296. HYDROMORPHONE [Suspect]
     Active Substance: HYDROMORPHONE
  297. HYDROMORPHONE [Suspect]
     Active Substance: HYDROMORPHONE
  298. HYDROMORPHONE [Suspect]
     Active Substance: HYDROMORPHONE
  299. RABEPRAZOLE [Suspect]
     Active Substance: RABEPRAZOLE
     Indication: Migraine
  300. RABEPRAZOLE [Suspect]
     Active Substance: RABEPRAZOLE
  301. RABEPRAZOLE [Suspect]
     Active Substance: RABEPRAZOLE
  302. RABEPRAZOLE [Suspect]
     Active Substance: RABEPRAZOLE
  303. RABEPRAZOLE [Suspect]
     Active Substance: RABEPRAZOLE
  304. RABEPRAZOLE [Suspect]
     Active Substance: RABEPRAZOLE
  305. RABEPRAZOLE [Suspect]
     Active Substance: RABEPRAZOLE
  306. RABEPRAZOLE [Suspect]
     Active Substance: RABEPRAZOLE
  307. RABEPRAZOLE [Suspect]
     Active Substance: RABEPRAZOLE
  308. RABEPRAZOLE [Suspect]
     Active Substance: RABEPRAZOLE
  309. RABEPRAZOLE [Suspect]
     Active Substance: RABEPRAZOLE
  310. RABEPRAZOLE [Suspect]
     Active Substance: RABEPRAZOLE
  311. RABEPRAZOLE [Suspect]
     Active Substance: RABEPRAZOLE
  312. RABEPRAZOLE [Suspect]
     Active Substance: RABEPRAZOLE
  313. RABEPRAZOLE [Suspect]
     Active Substance: RABEPRAZOLE
  314. RABEPRAZOLE [Suspect]
     Active Substance: RABEPRAZOLE
  315. RABEPRAZOLE [Suspect]
     Active Substance: RABEPRAZOLE
  316. RABEPRAZOLE [Suspect]
     Active Substance: RABEPRAZOLE
  317. RABEPRAZOLE [Suspect]
     Active Substance: RABEPRAZOLE
  318. RABEPRAZOLE [Suspect]
     Active Substance: RABEPRAZOLE
  319. RABEPRAZOLE [Suspect]
     Active Substance: RABEPRAZOLE
  320. RABEPRAZOLE [Suspect]
     Active Substance: RABEPRAZOLE
  321. RABEPRAZOLE [Suspect]
     Active Substance: RABEPRAZOLE
  322. RABEPRAZOLE [Suspect]
     Active Substance: RABEPRAZOLE
  323. RABEPRAZOLE [Suspect]
     Active Substance: RABEPRAZOLE
  324. RABEPRAZOLE [Suspect]
     Active Substance: RABEPRAZOLE
  325. RABEPRAZOLE [Suspect]
     Active Substance: RABEPRAZOLE
  326. RABEPRAZOLE [Suspect]
     Active Substance: RABEPRAZOLE
  327. RABEPRAZOLE [Suspect]
     Active Substance: RABEPRAZOLE
  328. RABEPRAZOLE [Suspect]
     Active Substance: RABEPRAZOLE
  329. RABEPRAZOLE [Suspect]
     Active Substance: RABEPRAZOLE
  330. RABEPRAZOLE [Suspect]
     Active Substance: RABEPRAZOLE
  331. RABEPRAZOLE [Suspect]
     Active Substance: RABEPRAZOLE
  332. RABEPRAZOLE [Suspect]
     Active Substance: RABEPRAZOLE
  333. RABEPRAZOLE [Suspect]
     Active Substance: RABEPRAZOLE
  334. RABEPRAZOLE [Suspect]
     Active Substance: RABEPRAZOLE
  335. SCOPOLAMINE AMINOXIDE HYDROBROMIDE [Suspect]
     Active Substance: SCOPOLAMINE AMINOXIDE HYDROBROMIDE
     Indication: Migraine
  336. SCOPOLAMINE AMINOXIDE HYDROBROMIDE [Suspect]
     Active Substance: SCOPOLAMINE AMINOXIDE HYDROBROMIDE
  337. CIPROFLOXACIN [Suspect]
     Active Substance: CIPROFLOXACIN
     Indication: Migraine
  338. CIPROFLOXACIN [Suspect]
     Active Substance: CIPROFLOXACIN
     Route: 048
  339. CIPROFLOXACIN [Suspect]
     Active Substance: CIPROFLOXACIN
  340. CIPROFLOXACIN [Suspect]
     Active Substance: CIPROFLOXACIN
  341. CIPROFLOXACIN [Suspect]
     Active Substance: CIPROFLOXACIN
     Route: 048
  342. CIPROFLOXACIN [Suspect]
     Active Substance: CIPROFLOXACIN
  343. SCOPOLAMINE [Suspect]
     Active Substance: SCOPOLAMINE
     Indication: Migraine
  344. SCOPOLAMINE [Suspect]
     Active Substance: SCOPOLAMINE
  345. SCOPOLAMINE [Suspect]
     Active Substance: SCOPOLAMINE
  346. SCOPOLAMINE [Suspect]
     Active Substance: SCOPOLAMINE
  347. SCOPOLAMINE [Suspect]
     Active Substance: SCOPOLAMINE
  348. SCOPOLAMINE [Suspect]
     Active Substance: SCOPOLAMINE
  349. TRAMADOL HYDROCHLORIDE [Suspect]
     Active Substance: TRAMADOL HYDROCHLORIDE
     Indication: Product used for unknown indication
  350. TRAMADOL HYDROCHLORIDE [Suspect]
     Active Substance: TRAMADOL HYDROCHLORIDE
  351. AZITHROMYCIN DIHYDRATE [Suspect]
     Active Substance: AZITHROMYCIN DIHYDRATE
     Indication: Product used for unknown indication
  352. AZITHROMYCIN DIHYDRATE [Suspect]
     Active Substance: AZITHROMYCIN DIHYDRATE
  353. AZITHROMYCIN DIHYDRATE [Suspect]
     Active Substance: AZITHROMYCIN DIHYDRATE
  354. NEXIUM 24HR [Suspect]
     Active Substance: ESOMEPRAZOLE MAGNESIUM
     Indication: Migraine
  355. NEXIUM 24HR [Suspect]
     Active Substance: ESOMEPRAZOLE MAGNESIUM
  356. NEXIUM 24HR [Suspect]
     Active Substance: ESOMEPRAZOLE MAGNESIUM
  357. NEXIUM 24HR [Suspect]
     Active Substance: ESOMEPRAZOLE MAGNESIUM
  358. AZITHROMYCIN DIHYDRATE [Concomitant]
     Active Substance: AZITHROMYCIN DIHYDRATE
     Indication: Product used for unknown indication
  359. AZITHROMYCIN DIHYDRATE [Concomitant]
     Active Substance: AZITHROMYCIN DIHYDRATE
  360. AZITHROMYCIN DIHYDRATE [Concomitant]
     Active Substance: AZITHROMYCIN DIHYDRATE
  361. LISINOPRIL [Concomitant]
     Active Substance: LISINOPRIL
     Indication: Product used for unknown indication
  362. LISINOPRIL [Concomitant]
     Active Substance: LISINOPRIL
  363. LISINOPRIL [Concomitant]
     Active Substance: LISINOPRIL
  364. LISINOPRIL [Concomitant]
     Active Substance: LISINOPRIL
  365. PREDNISONE [Concomitant]
     Active Substance: PREDNISONE
     Indication: Product used for unknown indication
  366. PREDNISONE [Concomitant]
     Active Substance: PREDNISONE
  367. CEFUROXIME AXETIL [Concomitant]
     Active Substance: CEFUROXIME AXETIL
     Indication: Product used for unknown indication
  368. CEFUROXIME AXETIL [Concomitant]
     Active Substance: CEFUROXIME AXETIL
  369. CEFUROXIME AXETIL [Concomitant]
     Active Substance: CEFUROXIME AXETIL
  370. CEFUROXIME AXETIL [Concomitant]
     Active Substance: CEFUROXIME AXETIL
  371. CEPHALEXIN [Concomitant]
     Active Substance: CEPHALEXIN
     Indication: Product used for unknown indication
  372. CEPHALEXIN [Concomitant]
     Active Substance: CEPHALEXIN
  373. CEPHALEXIN [Concomitant]
     Active Substance: CEPHALEXIN
  374. CEPHALEXIN [Concomitant]
     Active Substance: CEPHALEXIN
  375. DANAZOL [Concomitant]
     Active Substance: DANAZOL
     Indication: Product used for unknown indication
  376. DANAZOL [Concomitant]
     Active Substance: DANAZOL
  377. DANAZOL [Concomitant]
     Active Substance: DANAZOL
  378. DANAZOL [Concomitant]
     Active Substance: DANAZOL
  379. ELAVIL [Concomitant]
     Active Substance: AMITRIPTYLINE HYDROCHLORIDE
     Indication: Product used for unknown indication
     Route: 048
  380. ELAVIL [Concomitant]
     Active Substance: AMITRIPTYLINE HYDROCHLORIDE
     Route: 048
  381. FERROUS FUMARATE [Concomitant]
     Active Substance: FERROUS FUMARATE
     Indication: Product used for unknown indication
  382. FERROUS FUMARATE [Concomitant]
     Active Substance: FERROUS FUMARATE
  383. FLUOXETINE HYDROCHLORIDE [Concomitant]
     Active Substance: FLUOXETINE HYDROCHLORIDE
     Indication: Product used for unknown indication
  384. FLUOXETINE HYDROCHLORIDE [Concomitant]
     Active Substance: FLUOXETINE HYDROCHLORIDE
  385. FLUTICASONE [Concomitant]
     Active Substance: FLUTICASONE
     Indication: Product used for unknown indication
  386. FLUTICASONE [Concomitant]
     Active Substance: FLUTICASONE
  387. FLUTICASONE [Concomitant]
     Active Substance: FLUTICASONE
  388. FLUTICASONE [Concomitant]
     Active Substance: FLUTICASONE
  389. MACROBID [Concomitant]
     Active Substance: NITROFURANTOIN\NITROFURANTOIN MONOHYDRATE
     Indication: Product used for unknown indication
     Route: 048
  390. MACROBID [Concomitant]
     Active Substance: NITROFURANTOIN\NITROFURANTOIN MONOHYDRATE
  391. MACROBID [Concomitant]
     Active Substance: NITROFURANTOIN\NITROFURANTOIN MONOHYDRATE
  392. MACROBID [Concomitant]
     Active Substance: NITROFURANTOIN\NITROFURANTOIN MONOHYDRATE
     Route: 048
  393. MACROBID [Concomitant]
     Active Substance: NITROFURANTOIN\NITROFURANTOIN MONOHYDRATE
  394. MACROBID [Concomitant]
     Active Substance: NITROFURANTOIN\NITROFURANTOIN MONOHYDRATE
  395. POLYETHYLENE GLYCOLS [Concomitant]
     Active Substance: POLYETHYLENE GLYCOLS
     Indication: Product used for unknown indication
  396. METOCLOPRAMIDE [Concomitant]
     Active Substance: METOCLOPRAMIDE
     Indication: Product used for unknown indication
  397. METOCLOPRAMIDE [Concomitant]
     Active Substance: METOCLOPRAMIDE
  398. METRONIDAZOLE [Concomitant]
     Active Substance: METRONIDAZOLE
     Indication: Migraine
  399. METRONIDAZOLE [Concomitant]
     Active Substance: METRONIDAZOLE
  400. MORPHINE SULFATE [Concomitant]
     Active Substance: MORPHINE SULFATE
     Indication: Product used for unknown indication
  401. MORPHINE SULFATE [Concomitant]
     Active Substance: MORPHINE SULFATE
  402. NAPROXEN [Concomitant]
     Active Substance: NAPROXEN
     Indication: Product used for unknown indication
  403. NAPROXEN [Concomitant]
     Active Substance: NAPROXEN
  404. NASONEX [Concomitant]
     Active Substance: MOMETASONE FUROATE
     Indication: Product used for unknown indication
  405. NASONEX [Concomitant]
     Active Substance: MOMETASONE FUROATE
  406. NASONEX [Concomitant]
     Active Substance: MOMETASONE FUROATE
  407. NASONEX [Concomitant]
     Active Substance: MOMETASONE FUROATE
  408. NITROFURANTOIN [Concomitant]
     Active Substance: NITROFURANTOIN
     Indication: Product used for unknown indication
  409. NITROFURANTOIN [Concomitant]
     Active Substance: NITROFURANTOIN
  410. NITROFURANTOIN [Concomitant]
     Active Substance: NITROFURANTOIN
  411. NITROFURANTOIN [Concomitant]
     Active Substance: NITROFURANTOIN
  412. OSELTAMIVIR [Concomitant]
     Active Substance: OSELTAMIVIR
     Indication: Product used for unknown indication
  413. OSELTAMIVIR [Concomitant]
     Active Substance: OSELTAMIVIR
  414. PANTOPRAZOLE SODIUM [Concomitant]
     Active Substance: PANTOPRAZOLE SODIUM
     Indication: Product used for unknown indication
  415. PANTOPRAZOLE SODIUM [Concomitant]
     Active Substance: PANTOPRAZOLE SODIUM
  416. ALBUTEROL [Concomitant]
     Active Substance: ALBUTEROL
     Indication: Product used for unknown indication
  417. ALBUTEROL [Concomitant]
     Active Substance: ALBUTEROL
  418. ALBUTEROL [Concomitant]
     Active Substance: ALBUTEROL
  419. ALBUTEROL [Concomitant]
     Active Substance: ALBUTEROL
  420. SULFATRIM [Concomitant]
     Active Substance: SULFAMETHOXAZOLE\TRIMETHOPRIM
     Indication: Product used for unknown indication
  421. SULFATRIM [Concomitant]
     Active Substance: SULFAMETHOXAZOLE\TRIMETHOPRIM
  422. SULFATRIM [Concomitant]
     Active Substance: SULFAMETHOXAZOLE\TRIMETHOPRIM
  423. SULFATRIM [Concomitant]
     Active Substance: SULFAMETHOXAZOLE\TRIMETHOPRIM
  424. SULFATRIM [Concomitant]
     Active Substance: SULFAMETHOXAZOLE\TRIMETHOPRIM
  425. SULFATRIM [Concomitant]
     Active Substance: SULFAMETHOXAZOLE\TRIMETHOPRIM
  426. SULFATRIM [Concomitant]
     Active Substance: SULFAMETHOXAZOLE\TRIMETHOPRIM
  427. SULFATRIM [Concomitant]
     Active Substance: SULFAMETHOXAZOLE\TRIMETHOPRIM
  428. ACETAMINOPHEN\TRAMADOL HYDROCHLORIDE [Concomitant]
     Active Substance: ACETAMINOPHEN\TRAMADOL HYDROCHLORIDE
     Indication: Product used for unknown indication
  429. ACETAMINOPHEN\TRAMADOL HYDROCHLORIDE [Concomitant]
     Active Substance: ACETAMINOPHEN\TRAMADOL HYDROCHLORIDE
  430. ALLOPURINOL [Concomitant]
     Active Substance: ALLOPURINOL
     Indication: Product used for unknown indication
  431. ALLOPURINOL [Concomitant]
     Active Substance: ALLOPURINOL
  432. ACETAMINOPHEN\CODEINE PHOSPHATE [Concomitant]
     Active Substance: ACETAMINOPHEN\CODEINE PHOSPHATE
     Indication: Product used for unknown indication
  433. ACETAMINOPHEN\CODEINE PHOSPHATE [Concomitant]
     Active Substance: ACETAMINOPHEN\CODEINE PHOSPHATE
  434. FLUOXETINE [Concomitant]
     Active Substance: FLUOXETINE HYDROCHLORIDE
     Indication: Product used for unknown indication
  435. FLUOXETINE [Concomitant]
     Active Substance: FLUOXETINE HYDROCHLORIDE
  436. FLUTICASONE PROPIONATE [Concomitant]
     Active Substance: FLUTICASONE PROPIONATE
     Indication: Product used for unknown indication
  437. FLUTICASONE PROPIONATE [Concomitant]
     Active Substance: FLUTICASONE PROPIONATE
  438. FLUTICASONE PROPIONATE [Concomitant]
     Active Substance: FLUTICASONE PROPIONATE
  439. FLUTICASONE PROPIONATE [Concomitant]
     Active Substance: FLUTICASONE PROPIONATE
  440. FLUTICASONE PROPIONATE [Concomitant]
     Active Substance: FLUTICASONE PROPIONATE
  441. FLUTICASONE PROPIONATE [Concomitant]
     Active Substance: FLUTICASONE PROPIONATE
  442. FLUTICASONE PROPIONATE [Concomitant]
     Active Substance: FLUTICASONE PROPIONATE
  443. FLUTICASONE PROPIONATE [Concomitant]
     Active Substance: FLUTICASONE PROPIONATE
  444. FROVATRIPTAN SUCCINATE [Concomitant]
     Active Substance: FROVATRIPTAN SUCCINATE
     Indication: Product used for unknown indication
  445. FROVATRIPTAN SUCCINATE [Concomitant]
     Active Substance: FROVATRIPTAN SUCCINATE
  446. VENLAFAXINE [Concomitant]
     Active Substance: VENLAFAXINE HYDROCHLORIDE
     Indication: Product used for unknown indication
  447. VENLAFAXINE [Concomitant]
     Active Substance: VENLAFAXINE HYDROCHLORIDE
  448. DANAZOL [Concomitant]
     Active Substance: DANAZOL
     Indication: Product used for unknown indication
  449. AZITHROMYCIN [Concomitant]
     Active Substance: AZITHROMYCIN
     Indication: Product used for unknown indication
  450. ACETAMINOPHEN\CODEINE PHOSPHATE [Concomitant]
     Active Substance: ACETAMINOPHEN\CODEINE PHOSPHATE
     Indication: Migraine
  451. ACETAMINOPHEN\CODEINE PHOSPHATE [Concomitant]
     Active Substance: ACETAMINOPHEN\CODEINE PHOSPHATE
  452. MOMETASONE FUROATE [Concomitant]
     Active Substance: MOMETASONE FUROATE
     Indication: Migraine
  453. MOMETASONE FUROATE [Concomitant]
     Active Substance: MOMETASONE FUROATE
     Indication: Product used for unknown indication
  454. CYMBALTA [Concomitant]
     Active Substance: DULOXETINE HYDROCHLORIDE
     Indication: Product used for unknown indication
  455. AMOXICILLIN\CLARITHROMYCIN\ESOMEPRAZOLE [Concomitant]
     Active Substance: AMOXICILLIN\CLARITHROMYCIN\ESOMEPRAZOLE
     Indication: Product used for unknown indication
  456. CODEINE [Concomitant]
     Active Substance: CODEINE
     Indication: Product used for unknown indication
  457. ACETAMINOPHEN\BUTALBITAL\CAFFEINE\CODEINE PHOSPHATE [Concomitant]
     Active Substance: ACETAMINOPHEN\BUTALBITAL\CAFFEINE\CODEINE PHOSPHATE
     Indication: Product used for unknown indication
  458. CEFUROXIME SODIUM [Concomitant]
     Active Substance: CEFUROXIME SODIUM
     Indication: Product used for unknown indication
  459. FROVATRIPTAN [Concomitant]
     Active Substance: FROVATRIPTAN
     Indication: Product used for unknown indication
  460. POLYETHYLENE GLYCOL 3350 [Concomitant]
     Active Substance: POLYETHYLENE GLYCOL 3350
     Indication: Product used for unknown indication
  461. OSELTAMIVIR PHOSPHATE [Concomitant]
     Active Substance: OSELTAMIVIR PHOSPHATE
     Indication: Product used for unknown indication
  462. SULFADIAZINE\TRIMETHOPRIM [Concomitant]
     Active Substance: SULFADIAZINE\TRIMETHOPRIM
     Indication: Product used for unknown indication
  463. CEFUROXIME [Concomitant]
     Active Substance: CEFUROXIME
     Indication: Product used for unknown indication
  464. APO SALVENT [SALBUTAMOL] [Concomitant]
     Indication: Product used for unknown indication
  465. PREDNISOLONE SODIUM PHOSPHATE [Concomitant]
     Active Substance: PREDNISOLONE SODIUM PHOSPHATE
     Indication: Product used for unknown indication

REACTIONS (8)
  - Drug intolerance [Recovered/Resolved]
  - Dysphonia [Recovered/Resolved]
  - Headache [Recovered/Resolved]
  - Angioedema [Recovered/Resolved]
  - Hypersensitivity [Recovered/Resolved]
  - Swollen tongue [Recovered/Resolved]
  - Swelling face [Recovered/Resolved]
  - Drug ineffective [Recovered/Resolved]
